FAERS Safety Report 13942307 (Version 3)
Quarter: 2020Q1

REPORT INFORMATION
  Report Type: Spontaneous
  Country: US (occurrence: US)
  Receive Date: 20170906
  Receipt Date: 20200102
  Transmission Date: 20200409
  Serious: Yes (Other)
  Sender: FDA-Public Use
  Company Number: US-PFIZER INC-2017386241

PATIENT
  Age: 59 Year
  Sex: Male

DRUGS (6)
  1. VIAGRA [Suspect]
     Active Substance: SILDENAFIL CITRATE
     Indication: ERECTILE DYSFUNCTION
     Dosage: 50 MG, (4 TABLETS PER MONTH)
     Route: 048
     Dates: start: 20110114, end: 201304
  2. CIALIS [Suspect]
     Active Substance: TADALAFIL
     Dosage: UNK, AS NEEDED
     Route: 048
     Dates: start: 201304, end: 201401
  3. TRAMADOL. [Concomitant]
     Active Substance: TRAMADOL
     Indication: PAIN
     Dosage: UNK
  4. IBUPROFEN. [Concomitant]
     Active Substance: IBUPROFEN
     Indication: PAIN
     Dosage: UNK
     Dates: start: 2000
  5. CIALIS [Suspect]
     Active Substance: TADALAFIL
     Indication: ERECTILE DYSFUNCTION
     Dosage: UNK
     Route: 048
     Dates: start: 20130128
  6. CIALIS [Suspect]
     Active Substance: TADALAFIL
     Dosage: UNK
     Route: 048
     Dates: start: 20130409

REACTIONS (1)
  - Malignant melanoma [Unknown]

NARRATIVE: CASE EVENT DATE: 20140903
